FAERS Safety Report 20155028 (Version 1)
Quarter: 2021Q4

REPORT INFORMATION
  Report Type: Spontaneous
  Country: GB (occurrence: GB)
  Receive Date: 20211207
  Receipt Date: 20211207
  Transmission Date: 20220304
  Serious: Yes (Hospitalization, Other)
  Sender: FDA-Public Use
  Company Number: None

PATIENT
  Age: 16 Year
  Sex: Male

DRUGS (4)
  1. RAMIPRIL [Suspect]
     Active Substance: RAMIPRIL
     Indication: Product used for unknown indication
  2. BISOPROLOL [Suspect]
     Active Substance: BISOPROLOL
     Indication: Product used for unknown indication
  3. PFIZER-BIONTECH COVID-19 VACCINE [Suspect]
     Active Substance: TOZINAMERAN
     Indication: Product used for unknown indication
     Dosage: DOSE 1
     Dates: start: 20210919
  4. COLCHICINE [Concomitant]
     Active Substance: COLCHICINE

REACTIONS (8)
  - Discharge [Recovered/Resolved]
  - Sinus bradycardia [Recovered/Resolved]
  - Pericarditis [Recovered/Resolved]
  - Vomiting [Recovered/Resolved]
  - Genitourinary symptom [Recovered/Resolved]
  - Myocarditis [Recovering/Resolving]
  - Chest pain [Unknown]
  - Pyrexia [Unknown]

NARRATIVE: CASE EVENT DATE: 20211114
